FAERS Safety Report 6616561-8 (Version None)
Quarter: 2010Q1

REPORT INFORMATION
  Report Type: 
  Country: None (occurrence: None)
  Receive Date: 20100305
  Receipt Date: 20100303
  Transmission Date: 20100710
  Serious: Yes (Death, Hospitalization)
  Sender: FDA-Public Use
  Company Number: US-AMGEN-US393442

PATIENT
  Sex: Male

DRUGS (12)
  1. PANITUMUMAB [Suspect]
     Indication: COLORECTAL CANCER
     Route: 042
     Dates: start: 20100127, end: 20100210
  2. IRINOTECAN [Suspect]
     Route: 042
     Dates: start: 20100127, end: 20100219
  3. 5-FU [Suspect]
     Route: 042
     Dates: start: 20100127, end: 20100219
  4. LEUCOVORIN CALCIUM [Suspect]
     Route: 042
     Dates: start: 20100127, end: 20100219
  5. MORPHINE SULFATE [Concomitant]
     Route: 048
     Dates: start: 20100201, end: 20100219
  6. COUMADIN [Concomitant]
     Route: 048
     Dates: start: 20070904, end: 20100219
  7. LORTAB [Concomitant]
     Route: 048
     Dates: start: 20090103, end: 20100219
  8. MEGESTROL ACETATE [Concomitant]
     Route: 048
     Dates: start: 20091020, end: 20100219
  9. ZOLPIDEM TARTRATE [Concomitant]
     Route: 048
     Dates: start: 20100127, end: 20100219
  10. ATROPINE [Concomitant]
     Route: 042
     Dates: start: 20100127, end: 20100219
  11. DEXAMETHASONE [Concomitant]
     Route: 042
     Dates: start: 20100127, end: 20100209
  12. PALONOSETRON HYDROCHLORIDE [Concomitant]
     Route: 042
     Dates: start: 20100127, end: 20100219

REACTIONS (2)
  - FEBRILE NEUTROPENIA [None]
  - SEPSIS [None]
